FAERS Safety Report 18553581 (Version 8)
Quarter: 2023Q1

REPORT INFORMATION
  Report Type: Other
  Country: DE (occurrence: None)
  Receive Date: 20201127
  Receipt Date: 20230112
  Transmission Date: 20230417
  Serious: No
  Sender: FDA-Public Use
  Company Number: DE-ROCHE-2716971

PATIENT
  Age: 33 Year
  Sex: Female

DRUGS (11)
  1. OCRELIZUMAB [Suspect]
     Active Substance: OCRELIZUMAB
     Indication: Relapsing multiple sclerosis
     Route: 042
     Dates: start: 20190502, end: 20190516
  2. OCRELIZUMAB [Suspect]
     Active Substance: OCRELIZUMAB
     Route: 042
     Dates: start: 20191107
  3. COMIRNATY [Concomitant]
     Active Substance: TOZINAMERAN
     Indication: COVID-19 immunisation
     Dosage: DEFINITION OF THE INTERVAL: AS REQUIRED
     Route: 030
     Dates: start: 20210922, end: 20210922
  4. COMIRNATY [Concomitant]
     Active Substance: TOZINAMERAN
     Dosage: DEFINITION OF THE INTERVAL: AS REQUIRED
     Route: 030
     Dates: start: 20210825, end: 20210825
  5. IBUPROFEN [Concomitant]
     Active Substance: IBUPROFEN
     Indication: Ulnocarpal abutment syndrome
     Route: 048
     Dates: start: 20210722
  6. IBUPROFEN [Concomitant]
     Active Substance: IBUPROFEN
     Route: 048
     Dates: start: 20220511
  7. LEVOTHYROXINE SODIUM [Concomitant]
     Active Substance: LEVOTHYROXINE SODIUM
     Indication: Hypothyroidism
     Route: 048
     Dates: start: 2016
  8. MODERNA COVID-19 VACCINE [Concomitant]
     Active Substance: ELASOMERAN
     Indication: COVID-19 immunisation
     Dosage: DEFINITION OF THE INTERVAL: AS REQUIRED
     Route: 030
     Dates: start: 20220308, end: 20220308
  9. METAMIZOL [Concomitant]
     Active Substance: METAMIZOLE SODIUM
     Indication: Ulnocarpal abutment syndrome
     Dosage: DEFINITION OF THE INTERVAL: AS REQUIRED
     Route: 048
     Dates: start: 20210722
  10. CHOLECALCIFEROL [Concomitant]
     Active Substance: CHOLECALCIFEROL
     Route: 048
  11. PANTOPRAZOLE SODIUM [Concomitant]
     Active Substance: PANTOPRAZOLE SODIUM
     Indication: Ulnocarpal abutment syndrome
     Dosage: DEFINITION OF THE INTERVAL: AS REQUIRED
     Route: 048
     Dates: start: 20210722

REACTIONS (1)
  - COVID-19 [Recovered/Resolved with Sequelae]

NARRATIVE: CASE EVENT DATE: 20201001
